FAERS Safety Report 18694485 (Version 1)
Quarter: 2021Q1

REPORT INFORMATION
  Report Type: Spontaneous
  Country: US (occurrence: US)
  Receive Date: 20210104
  Receipt Date: 20210104
  Transmission Date: 20210419
  Serious: No
  Sender: FDA-Public Use
  Company Number: US-CELGENEUS-USA-20201209137

PATIENT
  Age: 61 Year
  Sex: Female

DRUGS (7)
  1. THALOMID [Suspect]
     Active Substance: THALIDOMIDE
     Dosage: 400 MILLIGRAM
     Route: 048
     Dates: start: 201605
  2. THALOMID [Suspect]
     Active Substance: THALIDOMIDE
     Indication: PLASMA CELL MYELOMA
     Dosage: 100 MILLIGRAM
     Route: 048
     Dates: start: 201411
  3. THALOMID [Suspect]
     Active Substance: THALIDOMIDE
     Dosage: 400 MILLIGRAM
     Route: 048
     Dates: start: 202010
  4. THALOMID [Suspect]
     Active Substance: THALIDOMIDE
     Dosage: 400 MILLIGRAM
     Route: 048
     Dates: start: 20170101
  5. THALOMID [Suspect]
     Active Substance: THALIDOMIDE
     Dosage: 300?200 MG
     Route: 048
     Dates: start: 201511
  6. THALOMID [Suspect]
     Active Substance: THALIDOMIDE
     Dosage: 100?200 MG
     Route: 048
     Dates: start: 201506
  7. THALOMID [Suspect]
     Active Substance: THALIDOMIDE
     Dosage: 400 MILLIGRAM
     Route: 048
     Dates: start: 201412

REACTIONS (1)
  - COVID-19 [Not Recovered/Not Resolved]

NARRATIVE: CASE EVENT DATE: 20201215
